FAERS Safety Report 17194077 (Version 1)
Quarter: 2019Q4

REPORT INFORMATION
  Report Type: Spontaneous
  Country: IT (occurrence: IT)
  Receive Date: 20191223
  Receipt Date: 20191223
  Transmission Date: 20200122
  Serious: Yes (Death, Hospitalization, Other)
  Sender: FDA-Public Use
  Company Number: IT-ARRAY-2019-07055

PATIENT

DRUGS (4)
  1. FENTANYL. [Concomitant]
     Active Substance: FENTANYL
     Indication: PAIN
     Dosage: 1 PATCH EVERY 3 DAYS
     Route: 062
     Dates: start: 20190104, end: 20191012
  2. BRAFTOVI [Suspect]
     Active Substance: ENCORAFENIB
     Indication: COLORECTAL CANCER METASTATIC
     Dosage: 300 MG, QD
     Dates: start: 20190807, end: 20190903
  3. MEKTOVI [Suspect]
     Active Substance: BINIMETINIB
     Indication: COLORECTAL CANCER METASTATIC
     Dosage: 90 MG, QD
     Route: 048
     Dates: start: 20190807, end: 20190903
  4. CETUXIMAB. [Suspect]
     Active Substance: CETUXIMAB
     Indication: COLON CANCER METASTATIC
     Dosage: 440 MG WEEKLY
     Route: 042
     Dates: start: 20190807, end: 20190829

REACTIONS (7)
  - Asthenia [Fatal]
  - Product use in unapproved indication [Unknown]
  - Confusional state [Fatal]
  - Spinal pain [Fatal]
  - Encephalitis [Fatal]
  - Meningitis viral [Fatal]
  - Diplegia [Fatal]

NARRATIVE: CASE EVENT DATE: 201908
